FAERS Safety Report 24181563 (Version 1)
Quarter: 2024Q3

REPORT INFORMATION
  Report Type: Spontaneous
  Country: US (occurrence: US)
  Receive Date: 20240807
  Receipt Date: 20240807
  Transmission Date: 20241016
  Serious: No
  Sender: TEVA
  Company Number: US-TEVA-VS-3226201

PATIENT
  Age: 81 Year
  Sex: Female

DRUGS (2)
  1. AUSTEDO [Suspect]
     Active Substance: DEUTETRABENAZINE
     Indication: Tardive dyskinesia
     Dosage: AUSTEDO 6 MG IN THE MORNING AND AUSTEDO 9 MG AT NIGHT DAILY
     Route: 065
  2. AUSTEDO [Suspect]
     Active Substance: DEUTETRABENAZINE
     Indication: Tardive dyskinesia
     Dosage: AUSTEDO 9 MG IN THE MORNING AND AUSTEDO 6 MG AT NIGHT DAILY
     Route: 065

REACTIONS (1)
  - Somnolence [Unknown]
